FAERS Safety Report 9438799 (Version 1)
Quarter: 2013Q3

REPORT INFORMATION
  Report Type: Spontaneous
  Country: US (occurrence: US)
  Receive Date: 20130802
  Receipt Date: 20130802
  Transmission Date: 20140515
  Serious: Yes (Other)
  Sender: FDA-Public Use
  Company Number: US-ASTRAZENECA-2013SE56943

PATIENT
  Age: 46 Year
  Sex: Female
  Weight: 72.6 kg

DRUGS (3)
  1. TOPROL XL [Suspect]
     Indication: THYROID DISORDER
     Route: 048
  2. METHIMAZOLE [Suspect]
     Indication: THYROID DISORDER
     Dosage: DAILY
     Route: 065
     Dates: end: 2013
  3. UNSPECIFIED MEDICATIONS [Concomitant]

REACTIONS (3)
  - Renal pain [Unknown]
  - Depression [Unknown]
  - Intentional drug misuse [Unknown]
